FAERS Safety Report 4692613-7 (Version None)
Quarter: 2005Q2

REPORT INFORMATION
  Report Type: 
  Country: None (occurrence: None)
  Receive Date: 20050617
  Receipt Date: 20050603
  Transmission Date: 20051028
  Serious: Yes (Other)
  Sender: FDA-Public Use
  Company Number: US-AMGEN-US137106

PATIENT
  Sex: Female

DRUGS (7)
  1. ENBREL [Suspect]
     Indication: RHEUMATOID ARTHRITIS
     Route: 058
     Dates: start: 20050201, end: 20050523
  2. NAPROSYN [Concomitant]
  3. PLAQUENIL [Concomitant]
  4. TRIAMCINOLONE [Concomitant]
  5. VITAMINS [Concomitant]
  6. ALBUTEROL [Concomitant]
     Dates: start: 20050501
  7. ADVAIR [Concomitant]

REACTIONS (3)
  - ASTHMA [None]
  - HYPOAESTHESIA [None]
  - NASOPHARYNGITIS [None]
